FAERS Safety Report 7151168-8 (Version None)
Quarter: 2010Q4

REPORT INFORMATION
  Report Type: 
  Country: None (occurrence: None)
  Receive Date: 20101206
  Receipt Date: 20101206
  Transmission Date: 20110411
  Serious: Yes (Other)
  Sender: FDA-Public Use
  Company Number: None

PATIENT
  Sex: Female
  Weight: 68 kg

DRUGS (6)
  1. IXABEPILONE [Suspect]
     Indication: BREAST CANCER
     Dosage: 20MG/M2 IV DAYS 2,9,16
  2. VORINOSTAT [Suspect]
     Indication: BREAST CANCER
     Dosage: 300MG PO DAILY
  3. LEXAPRO [Concomitant]
  4. METHADONE [Concomitant]
  5. AMBIEN [Concomitant]
  6. ATIVAN [Concomitant]

REACTIONS (7)
  - ABDOMINAL PAIN UPPER [None]
  - CHILLS [None]
  - CONSTIPATION [None]
  - DIZZINESS [None]
  - HAEMOGLOBIN DECREASED [None]
  - HYPOPHAGIA [None]
  - NEUTROPHIL COUNT DECREASED [None]
